FAERS Safety Report 6994965-1 (Version None)
Quarter: 2010Q3

REPORT INFORMATION
  Report Type: 
  Country: None (occurrence: None)
  Receive Date: 20100915
  Receipt Date: 20100830
  Transmission Date: 20110219
  Serious: Yes (Death)
  Sender: FDA-Public Use
  Company Number: AUR-APL-2010-02153

PATIENT
  Age: 45 Year
  Sex: Female

DRUGS (4)
  1. GABAPENTIN [Suspect]
  2. BACLOFEN [Suspect]
  3. TOLTERODINE TARTRATE [Suspect]
  4. DULOXETINE [Suspect]

REACTIONS (2)
  - COMPLETED SUICIDE [None]
  - DRUG TOXICITY [None]
